FAERS Safety Report 6191769-7 (Version None)
Quarter: 2009Q2

REPORT INFORMATION
  Report Type: 
  Country: None (occurrence: None)
  Receive Date: 20090515
  Receipt Date: 20090505
  Transmission Date: 20091009
  Serious: Yes (Death)
  Sender: FDA-Public Use
  Company Number: PE-PFIZER INC-2009210064

PATIENT
  Age: 78 Year

DRUGS (2)
  1. LYRICA [Suspect]
     Indication: FIBROMYALGIA
     Dosage: UNK
  2. TILAZEM [Suspect]
     Indication: HYPERTENSION
     Dosage: UNK

REACTIONS (1)
  - DEATH [None]
